FAERS Safety Report 13722334 (Version 1)
Quarter: 2017Q3

REPORT INFORMATION
  Report Type: Report from Study
  Country: IL (occurrence: IL)
  Receive Date: 20170706
  Receipt Date: 20170706
  Transmission Date: 20171127
  Serious: Yes (Hospitalization)
  Sender: FDA-Public Use
  Company Number: PHHO2013IL018654

PATIENT
  Age: 74 Year
  Sex: Male
  Weight: 74.5 kg

DRUGS (9)
  1. SLOW K [Concomitant]
     Active Substance: POTASSIUM CHLORIDE
     Indication: HYPOKALAEMIA
     Dosage: 600 MG, Q8H
     Route: 048
     Dates: start: 20130228, end: 20130303
  2. SIRAN [Concomitant]
     Indication: DYSPNOEA
     Dosage: 200 MG, Q8H
     Route: 048
     Dates: start: 20130227, end: 20130310
  3. VABEN [Concomitant]
     Active Substance: OXAZEPAM
     Indication: PROPHYLAXIS
     Dosage: 10 MG, ONCE/SINGLE
     Route: 048
     Dates: start: 20130228, end: 20130228
  4. AEROVENT [Concomitant]
     Indication: DYSPNOEA
     Dosage: 2 CM3, Q6H
     Route: 055
     Dates: start: 20130227, end: 20130303
  5. OFATUMUMAB [Suspect]
     Active Substance: OFATUMUMAB
     Indication: CHRONIC LYMPHOCYTIC LEUKAEMIA
     Dosage: CYCLIC
     Route: 042
     Dates: start: 20110619, end: 20130120
  6. LAXADIN [Concomitant]
     Active Substance: BISACODYL
     Indication: CONSTIPATION
     Dosage: ONCE/SINGLE
     Route: 048
     Dates: start: 20130227, end: 20130227
  7. RIBOMUSTIN [Concomitant]
     Active Substance: BENDAMUSTINE HYDROCHLORIDE
     Indication: CHRONIC LYMPHOCYTIC LEUKAEMIA
     Dosage: 50 MG, UNK
     Route: 065
  8. ACAMOL [Concomitant]
     Active Substance: ACETAMINOPHEN
     Indication: PYREXIA
     Dosage: 1 G, PRN
     Route: 048
     Dates: start: 20130226, end: 20130228
  9. AVILAC [Concomitant]
     Indication: CONSTIPATION
     Dosage: 30 CM3, ONCE/SINGLE
     Route: 048
     Dates: start: 20130227, end: 20130227

REACTIONS (6)
  - General physical health deterioration [Not Recovered/Not Resolved]
  - Pyrexia [Recovered/Resolved]
  - Pneumonia [Not Recovered/Not Resolved]
  - Pneumonia [Recovered/Resolved]
  - Atrial fibrillation [Recovered/Resolved]
  - Dehydration [Recovered/Resolved]

NARRATIVE: CASE EVENT DATE: 20130225
